FAERS Safety Report 8625832-5 (Version None)
Quarter: 2012Q3

REPORT INFORMATION
  Report Type: 
  Country: None (occurrence: None)
  Receive Date: 20120827
  Receipt Date: 20120823
  Transmission Date: 20120928
  Serious: Yes (Life-Threatening)
  Sender: FDA-Public Use
  Company Number: TR-ROCHE-1106624

PATIENT
  Sex: Male
  Weight: 74 kg

DRUGS (2)
  1. MYCOPHENOLATE MOFETIL (CELLCEPT) [Suspect]
     Indication: ORBITAL PSEUDOTUMOUR
     Route: 048
     Dates: start: 20120721, end: 20120814
  2. PREDNISOLONE [Concomitant]
     Indication: ORBITAL PSEUDOTUMOUR
     Route: 048
     Dates: start: 20120721

REACTIONS (4)
  - SENSORY LOSS [None]
  - DIZZINESS [None]
  - BALANCE DISORDER [None]
  - SPEECH DISORDER [None]
